FAERS Safety Report 11687250 (Version 1)
Quarter: 2015Q4

REPORT INFORMATION
  Report Type: Spontaneous
  Country: FR (occurrence: FR)
  Receive Date: 20151030
  Receipt Date: 20151030
  Transmission Date: 20160304
  Serious: Yes (Hospitalization)
  Sender: FDA-Public Use
  Company Number: FR-B. BRAUN MEDICAL INC.-1043601

PATIENT
  Age: 12 Year
  Sex: Male

DRUGS (9)
  1. METRONIDAZOLE. [Suspect]
     Active Substance: METRONIDAZOLE
     Indication: SINUSITIS
     Dates: start: 20150822
  2. SOLU-MEDROL [Concomitant]
     Active Substance: METHYLPREDNISOLONE SODIUM SUCCINATE
     Dates: start: 20150822, end: 20150824
  3. ROCEPHIN [Concomitant]
     Active Substance: CEFTRIAXONE SODIUM
  4. GENTAMYCINE [Concomitant]
     Active Substance: GENTAMICIN
     Route: 042
     Dates: start: 20150824, end: 20150915
  5. CEFOTAXIME [Concomitant]
     Active Substance: CEFOTAXIME SODIUM
     Route: 044
     Dates: start: 20150822, end: 20150915
  6. CHIBRO-CADRON(DEXAMETHASONE, NEOMYCINE, BENZODODECINIUM IN EYEWASH [Concomitant]
  7. STERDEX( DEXAMETHASONE, OXYTETRACYCLINE) [Concomitant]
  8. TOBREX [Concomitant]
     Active Substance: TOBRAMYCIN
  9. CELESTENE (BETAMETHASONE)(CHEMOSIS) [Concomitant]

REACTIONS (1)
  - Agranulocytosis [None]
